FAERS Safety Report 11249093 (Version 1)
Quarter: 2015Q3

REPORT INFORMATION
  Report Type: Spontaneous
  Country: US (occurrence: US)
  Receive Date: 20150708
  Receipt Date: 20150708
  Transmission Date: 20151125
  Serious: No
  Sender: FDA-Public Use
  Company Number: US-ELI_LILLY_AND_COMPANY-US200810004215

PATIENT
  Sex: Female

DRUGS (10)
  1. DECADRON [Concomitant]
     Active Substance: DEXAMETHASONE
  2. ERGOCALCIFEROL. [Concomitant]
     Active Substance: ERGOCALCIFEROL
  3. COMPAZINE /00013304/ [Concomitant]
  4. CALCIUM [Concomitant]
     Active Substance: CALCIUM
  5. FOLIC ACID. [Concomitant]
     Active Substance: FOLIC ACID
  6. FISH OIL [Concomitant]
     Active Substance: FISH OIL
  7. VITAMIN B12 [Concomitant]
     Active Substance: CYANOCOBALAMIN
  8. BONIVA [Concomitant]
     Active Substance: IBANDRONATE SODIUM
  9. PROTONIX [Concomitant]
     Active Substance: PANTOPRAZOLE SODIUM
  10. ALIMTA [Suspect]
     Active Substance: PEMETREXED DISODIUM
     Indication: NON-SMALL CELL LUNG CANCER
     Dosage: 500 MG/M2, UNK
     Dates: start: 20081007

REACTIONS (6)
  - Recall phenomenon [Not Recovered/Not Resolved]
  - Rash maculo-papular [Not Recovered/Not Resolved]
  - Wheezing [Recovering/Resolving]
  - Skin discomfort [Unknown]
  - Cough [Recovering/Resolving]
  - Rash [Unknown]

NARRATIVE: CASE EVENT DATE: 200810
